FAERS Safety Report 15313753 (Version 1)
Quarter: 2018Q3

REPORT INFORMATION
  Report Type: Spontaneous
  Country: FR (occurrence: FR)
  Receive Date: 20180824
  Receipt Date: 20180824
  Transmission Date: 20181010
  Serious: Yes (Hospitalization)
  Sender: FDA-Public Use
  Company Number: FR-AUROBINDO-AUR-APL-2018-042962

PATIENT
  Age: 42 Year
  Sex: Male
  Weight: 93 kg

DRUGS (2)
  1. PARACETAMOL [Suspect]
     Active Substance: ACETAMINOPHEN
     Indication: HEADACHE
     Dosage: 5 GRAM, ONCE A DAY
     Route: 048
     Dates: end: 201802
  2. HUMIRA [Suspect]
     Active Substance: ADALIMUMAB
     Indication: ANKYLOSING SPONDYLITIS
     Route: 058
     Dates: start: 201610, end: 201801

REACTIONS (2)
  - Hepatic steatosis [Unknown]
  - Hepatic enzyme increased [Recovering/Resolving]

NARRATIVE: CASE EVENT DATE: 201703
